FAERS Safety Report 8234107-8 (Version None)
Quarter: 2012Q1

REPORT INFORMATION
  Report Type: 
  Country: None (occurrence: None)
  Receive Date: 20120326
  Receipt Date: 20120326
  Transmission Date: 20120608
  Serious: Yes (Other)
  Sender: FDA-Public Use
  Company Number: None

PATIENT
  Age: 40 Year
  Sex: Male
  Weight: 62 kg

DRUGS (3)
  1. RISPERIODONE [Concomitant]
     Indication: BIPOLAR DISORDER
     Dosage: 2MG
     Route: 048
  2. SERTRALINE HYDROCHLORIDE [Suspect]
     Indication: DEPRESSION
     Dosage: 50.0 MG
     Route: 048
  3. SERTRALINE HYDROCHLORIDE [Suspect]
     Indication: DEPRESSION
     Dosage: 50.0 MG
     Route: 048

REACTIONS (2)
  - ERECTILE DYSFUNCTION [None]
  - HYPERSEXUALITY [None]
